FAERS Safety Report 14371633 (Version 3)
Quarter: 2018Q1

REPORT INFORMATION
  Report Type: Spontaneous
  Country: US (occurrence: US)
  Receive Date: 20180110
  Receipt Date: 20180216
  Transmission Date: 20180509
  Serious: No
  Sender: FDA-Public Use
  Company Number: US-GLAXOSMITHKLINE-US2017GSK202873

PATIENT
  Sex: Female

DRUGS (1)
  1. TANZEUM [Suspect]
     Active Substance: ALBIGLUTIDE
     Indication: BLOOD GLUCOSE INCREASED
     Dosage: 50 MG, UNK
     Route: 058

REACTIONS (5)
  - Wrong technique in device usage process [Unknown]
  - Injury associated with device [Recovering/Resolving]
  - Device leakage [Unknown]
  - Product quality issue [Unknown]
  - Intercepted medication error [Unknown]
